FAERS Safety Report 13045721 (Version 1)
Quarter: 2016Q4

REPORT INFORMATION
  Report Type: Spontaneous
  Country: US (occurrence: US)
  Receive Date: 20161220
  Receipt Date: 20161220
  Transmission Date: 20170207
  Serious: Yes (Life-Threatening)
  Sender: FDA-Public Use
  Company Number: None

PATIENT
  Age: 86 Year
  Sex: Male

DRUGS (1)
  1. ATORVASTATIN 10MG APOTEX [Suspect]
     Active Substance: ATORVASTATIN
     Indication: BLOOD CHOLESTEROL
     Route: 048
     Dates: start: 20161126, end: 20161205

REACTIONS (3)
  - Rash [None]
  - Traumatic lung injury [None]
  - Pneumonia [None]

NARRATIVE: CASE EVENT DATE: 20161126
